FAERS Safety Report 23624173 (Version 2)
Quarter: 2024Q1

REPORT INFORMATION
  Report Type: Report from Study
  Country: US (occurrence: US)
  Receive Date: 20240312
  Receipt Date: 20240328
  Transmission Date: 20240410
  Serious: No
  Sender: FDA-Public Use
  Company Number: US-ALXN-202403USA000462US

PATIENT

DRUGS (1)
  1. STRENSIQ [Suspect]
     Active Substance: ASFOTASE ALFA
     Indication: Product used for unknown indication
     Dosage: UNK
     Route: 065

REACTIONS (8)
  - Asthma [Unknown]
  - Pain in extremity [Unknown]
  - Arthralgia [Unknown]
  - Injection site atrophy [Unknown]
  - Hypersensitivity [Unknown]
  - Injection site discolouration [Unknown]
  - Injection site erythema [Unknown]
  - Injection site hypertrophy [Unknown]

NARRATIVE: CASE EVENT DATE: 20240122
